FAERS Safety Report 9919285 (Version 2)
Quarter: 2015Q2

REPORT INFORMATION
  Report Type: Spontaneous
  Country: US (occurrence: US)
  Receive Date: 20140224
  Receipt Date: 20150601
  Transmission Date: 20150821
  Serious: Yes (Other)
  Sender: FDA-Public Use
  Company Number: US-SA-2014SA021579

PATIENT
  Age: 71 Year
  Sex: Female

DRUGS (2)
  1. LANTUS SOLOSTAR [Suspect]
     Active Substance: INSULIN GLARGINE
     Indication: TYPE 2 DIABETES MELLITUS
     Dosage: TAKEN FROM: 3-4 YEARS AGO. DOSE:20 UNIT(S)
     Route: 051
     Dates: start: 201006
  2. SOLOSTAR [Concomitant]
     Active Substance: DEVICE
     Indication: TYPE 2 DIABETES MELLITUS
     Dates: start: 201006

REACTIONS (4)
  - Macular degeneration [Unknown]
  - Visual acuity reduced [Unknown]
  - Visual field defect [Recovering/Resolving]
  - Eye injury [Unknown]
